FAERS Safety Report 5010765-6 (Version None)
Quarter: 2006Q2

REPORT INFORMATION
  Report Type: 
  Country: None (occurrence: None)
  Receive Date: 20060525
  Receipt Date: 20060508
  Transmission Date: 20061013
  Serious: Yes (Hospitalization)
  Sender: FDA-Public Use
  Company Number: JP-ROCHE-447328

PATIENT
  Age: 45 Year
  Sex: Female
  Weight: 53 kg

DRUGS (4)
  1. TAMIFLU [Suspect]
     Indication: INFLUENZA
     Route: 048
     Dates: start: 20060426, end: 20060426
  2. KEFLEX [Suspect]
     Indication: INFLUENZA
     Route: 048
     Dates: start: 20060427
  3. LOXOPROFEN SODIUM [Concomitant]
     Route: 048
     Dates: start: 20060427
  4. SERRAPEPTASE [Concomitant]
     Dosage: DOSE FORM REPORTED AS ORAL FORMULATION (NOT OTHERWISE SPECIFIED)
     Route: 048
     Dates: start: 20060427

REACTIONS (1)
  - RENAL FAILURE ACUTE [None]
